FAERS Safety Report 8612432-6 (Version None)
Quarter: 2012Q3

REPORT INFORMATION
  Report Type: 
  Country: None (occurrence: None)
  Receive Date: 20120822
  Receipt Date: 20120817
  Transmission Date: 20120928
  Serious: Yes (Other)
  Sender: FDA-Public Use
  Company Number: IT-PFIZER INC-2012202970

PATIENT
  Age: 79 Year
  Sex: Male

DRUGS (9)
  1. ATORVASTATIN [Concomitant]
     Dosage: UNK
  2. LIMPIDEX [Concomitant]
     Dosage: UNK
  3. AVODART [Concomitant]
     Dosage: UNK
  4. ENALAPRIL MALEATE [Concomitant]
     Dosage: UNK
  5. RIFAXIMIN [Concomitant]
     Dosage: UNK
  6. AZITHROMYCIN [Suspect]
     Indication: BRONCHITIS
     Dosage: 500 MG, 1X/DAY
     Route: 048
     Dates: start: 20120528, end: 20120530
  7. COUMADIN [Suspect]
     Indication: ATRIAL FIBRILLATION
     Dosage: 13.75 MG, WEEKLY
     Route: 048
     Dates: start: 20100906, end: 20120531
  8. LEVOFLOXACIN [Suspect]
     Indication: BRONCHITIS
     Dosage: 500 MG, 1X/DAY
     Route: 048
     Dates: start: 20120531, end: 20120605
  9. CARVEDILOL [Concomitant]
     Dosage: UNK

REACTIONS (1)
  - INTERNATIONAL NORMALISED RATIO INCREASED [None]
